FAERS Safety Report 16697453 (Version 2)
Quarter: 2019Q3

REPORT INFORMATION
  Report Type: Spontaneous
  Country: US (occurrence: US)
  Receive Date: 20190813
  Receipt Date: 20190913
  Transmission Date: 20191004
  Serious: No
  Sender: FDA-Public Use
  Company Number: US-TAKEDA-2019TUS047154

PATIENT
  Age: 61 Year
  Sex: Female
  Weight: 99.77 kg

DRUGS (2)
  1. WELLBUTRIN [Concomitant]
     Active Substance: BUPROPION HYDROCHLORIDE
     Indication: DEPRESSION
     Dosage: 150 MILLIGRAM, QD
     Route: 065
     Dates: start: 201905
  2. TRINTELLIX [Suspect]
     Active Substance: VORTIOXETINE HYDROBROMIDE
     Indication: MAJOR DEPRESSION
     Dosage: 20 MILLIGRAM, QD
     Route: 048
     Dates: start: 20190326

REACTIONS (7)
  - Increased appetite [Recovering/Resolving]
  - Abdominal pain upper [Recovering/Resolving]
  - Flatulence [Recovering/Resolving]
  - Constipation [Recovering/Resolving]
  - Depression [Recovering/Resolving]
  - Nausea [Recovering/Resolving]
  - Weight increased [Recovering/Resolving]

NARRATIVE: CASE EVENT DATE: 20190326
